FAERS Safety Report 9692692 (Version 1)
Quarter: 2013Q4

REPORT INFORMATION
  Report Type: Spontaneous
  Country: US (occurrence: None)
  Receive Date: 20131115
  Receipt Date: 20131115
  Transmission Date: 20140711
  Serious: No
  Sender: FDA-Public Use
  Company Number: None

PATIENT
  Age: 38 Year
  Sex: Female

DRUGS (1)
  1. COPAXONE 20MG TEVA NEUROSCIENCE [Suspect]
     Indication: MULTIPLE SCLEROSIS
     Dates: start: 20130318, end: 20131012

REACTIONS (2)
  - Swelling face [None]
  - Lip swelling [None]
